FAERS Safety Report 7770361-4 (Version None)
Quarter: 2011Q3

REPORT INFORMATION
  Report Type: 
  Country: None (occurrence: None)
  Receive Date: 20110922
  Receipt Date: 20110413
  Transmission Date: 20111222
  Serious: Yes (Other)
  Sender: FDA-Public Use
  Company Number: US-ASTRAZENECA-2009UW11291

PATIENT
  Age: 60 Year
  Sex: Male
  Weight: 66.2 kg

DRUGS (6)
  1. ZANTAC [Concomitant]
     Dates: start: 20061211
  2. TOPROL-XL [Concomitant]
     Dates: start: 20061211
  3. LIPITOR [Concomitant]
     Dates: start: 20061211
  4. SEROQUEL [Suspect]
     Indication: DEPRESSION
     Route: 048
     Dates: start: 20060101
  5. SEROQUEL [Suspect]
     Dosage: 75 MG-100 MG
     Route: 048
     Dates: start: 20061206
  6. EFFEXOR XR [Concomitant]
     Route: 048
     Dates: start: 20061211

REACTIONS (3)
  - PANCREATITIS [None]
  - DIABETES MELLITUS INADEQUATE CONTROL [None]
  - DIABETES MELLITUS [None]
